FAERS Safety Report 4330334-0 (Version None)
Quarter: 2004Q1

REPORT INFORMATION
  Report Type: 
  Country: None (occurrence: None)
  Receive Date: 20040329
  Receipt Date: 20040317
  Transmission Date: 20041129
  Serious: Yes (Disabling, Other)
  Sender: FDA-Public Use
  Company Number: 2004017326

PATIENT
  Age: 61 Year
  Sex: Male
  Weight: 70 kg

DRUGS (2)
  1. NORVASC [Suspect]
     Indication: HYPERTENSION
     Dosage: 5 MG (DAILY),. ORAL
     Route: 048
     Dates: start: 20020907, end: 20040224
  2. TELMISARTAN (TELMISARTAN) [Suspect]
     Indication: HYPERTENSION
     Dosage: 40 MG (DAILY), ORAL
     Route: 048
     Dates: start: 20030918

REACTIONS (2)
  - ARRHYTHMIA [None]
  - DRUG INTERACTION [None]
